FAERS Safety Report 18638052 (Version 1)
Quarter: 2020Q4

REPORT INFORMATION
  Report Type: Spontaneous
  Country: BR (occurrence: BR)
  Receive Date: 20201218
  Receipt Date: 20201218
  Transmission Date: 20210114
  Serious: Yes (Life-Threatening, Other)
  Sender: FDA-Public Use
  Company Number: BR-TAKEDA-2020TUS058920

PATIENT

DRUGS (3)
  1. DEXILANT [Suspect]
     Active Substance: DEXLANSOPRAZOLE
     Indication: GASTROOESOPHAGEAL REFLUX DISEASE
  2. DEXILANT [Suspect]
     Active Substance: DEXLANSOPRAZOLE
     Indication: GASTRITIS
  3. DEXILANT [Suspect]
     Active Substance: DEXLANSOPRAZOLE
     Indication: DUODENAL ULCER
     Dosage: 60 MILLIGRAM
     Route: 065

REACTIONS (16)
  - Fatigue [Recovered/Resolved]
  - Constipation [Recovered/Resolved]
  - Near death experience [Unknown]
  - Illness [Unknown]
  - Asthenia [Recovered/Resolved]
  - Abdominal pain [Recovered/Resolved]
  - Drug ineffective [Recovered/Resolved]
  - Motion sickness [Recovered/Resolved]
  - Diarrhoea [Recovered/Resolved]
  - Tachycardia [Recovered/Resolved]
  - Abdominal pain upper [Recovered/Resolved]
  - Muscle fatigue [Recovered/Resolved]
  - Off label use [Recovered/Resolved]
  - Irritability [Recovered/Resolved]
  - Malaise [Recovered/Resolved]
  - Decreased appetite [Recovered/Resolved]
